FAERS Safety Report 24116896 (Version 1)
Quarter: 2024Q3

REPORT INFORMATION
  Report Type: Spontaneous
  Country: US (occurrence: US)
  Receive Date: 20240722
  Receipt Date: 20240722
  Transmission Date: 20241016
  Serious: No
  Sender: ROCHE
  Company Number: US-ROCHE-3563633

PATIENT
  Age: 52 Year
  Sex: Female
  Weight: 45.81 kg

DRUGS (3)
  1. OCREVUS [Suspect]
     Active Substance: OCRELIZUMAB
     Indication: Multiple sclerosis
     Route: 042
  2. SOLU-MEDROL [Suspect]
     Active Substance: METHYLPREDNISOLONE SODIUM SUCCINATE
     Indication: Product used for unknown indication
     Route: 042
  3. CALCIUM [Suspect]
     Active Substance: CALCIUM
     Indication: Menopause
     Route: 048

REACTIONS (30)
  - Fatigue [Not Recovered/Not Resolved]
  - Headache [Recovered/Resolved]
  - Blood calcium increased [Recovered/Resolved]
  - Cough [Recovered/Resolved]
  - Lung disorder [Recovered/Resolved]
  - Panic attack [Unknown]
  - Mood altered [Unknown]
  - Balance disorder [Unknown]
  - Dizziness [Recovered/Resolved]
  - Drug ineffective [Unknown]
  - Oropharyngeal pain [Unknown]
  - Rhinorrhoea [Unknown]
  - Palpitations [Recovered/Resolved]
  - Hypertension [Unknown]
  - Depression [Unknown]
  - Throat irritation [Unknown]
  - Hypoaesthesia [Unknown]
  - Abdominal discomfort [Recovered/Resolved]
  - Weight decreased [Not Recovered/Not Resolved]
  - Decreased appetite [Not Recovered/Not Resolved]
  - Stress [Not Recovered/Not Resolved]
  - Anxiety [Recovered/Resolved]
  - Dizziness [Unknown]
  - Suicidal ideation [Unknown]
  - Vision blurred [Not Recovered/Not Resolved]
  - Cognitive disorder [Recovering/Resolving]
  - Malaise [Unknown]
  - Night sweats [Unknown]
  - Visual impairment [Recovered/Resolved]
  - Alopecia [Recovered/Resolved]

NARRATIVE: CASE EVENT DATE: 20230901
